FAERS Safety Report 4301415-2 (Version None)
Quarter: 2004Q1

REPORT INFORMATION
  Report Type: 
  Country: None (occurrence: None)
  Receive Date: 20040220
  Receipt Date: 20040220
  Transmission Date: 20041129
  Serious: No
  Sender: FDA-Public Use
  Company Number: None

PATIENT
  Sex: Male
  Weight: 80 kg

DRUGS (2)
  1. XELODA [Suspect]
     Dosage: 950 MG BID [14 DAY CYCLE]
     Dates: start: 20040204
  2. CARBOPLATIN [Suspect]
     Dosage: 178 MG IV WEEKLY  LAST DOSE
     Route: 042
     Dates: start: 20040204

REACTIONS (3)
  - PRURITUS [None]
  - RASH ERYTHEMATOUS [None]
  - RASH MACULAR [None]
